FAERS Safety Report 9261753 (Version 1)
Quarter: 2013Q2

REPORT INFORMATION
  Report Type: Spontaneous
  Country: US (occurrence: US)
  Receive Date: 20130429
  Receipt Date: 20130429
  Transmission Date: 20140414
  Serious: Yes (Disabling, Other)
  Sender: FDA-Public Use
  Company Number: US-ELI_LILLY_AND_COMPANY-US201304008195

PATIENT
  Sex: Male
  Weight: 150.1 kg

DRUGS (1)
  1. HUMULIN REGULAR [Suspect]
     Dosage: UNK
     Route: 058

REACTIONS (1)
  - Blindness [Not Recovered/Not Resolved]
